FAERS Safety Report 5709904-0 (Version None)
Quarter: 2008Q2

REPORT INFORMATION
  Report Type: 
  Country: None (occurrence: None)
  Receive Date: 20080418
  Receipt Date: 20070924
  Transmission Date: 20081010
  Serious: No
  Sender: FDA-Public Use
  Company Number: US-ASTRAZENECA-2007UW11073

PATIENT
  Age: 64 Year
  Sex: Male
  Weight: 112.9 kg

DRUGS (3)
  1. TOPROL-XL [Suspect]
     Route: 048
     Dates: start: 20040101
  2. LIPITOR [Concomitant]
  3. METFORMIN HCL [Concomitant]

REACTIONS (1)
  - PSORIASIS [None]
